FAERS Safety Report 21423655 (Version 1)
Quarter: 2022Q4

REPORT INFORMATION
  Report Type: Report from Study
  Country: US (occurrence: US)
  Receive Date: 20221007
  Receipt Date: 20221007
  Transmission Date: 20230113
  Serious: Yes (Other)
  Sender: FDA-Public Use
  Company Number: US-BAYER-2022A135274

PATIENT
  Age: 45 Year
  Sex: Male

DRUGS (1)
  1. STIVARGA [Suspect]
     Active Substance: REGORAFENIB
     Indication: Gastrointestinal stromal tumour
     Dosage: 160 MG, QD
     Route: 048
     Dates: start: 20220918

REACTIONS (3)
  - Heart rate decreased [Not Recovered/Not Resolved]
  - Hypertension [Not Recovered/Not Resolved]
  - Dysphonia [Not Recovered/Not Resolved]
